FAERS Safety Report 7691045 (Version 3)
Quarter: 2016Q1

REPORT INFORMATION
  Report Type: Report from Study
  Country: GB (occurrence: GB)
  Receive Date: 20101129
  Receipt Date: 20160320
  Transmission Date: 20160526
  Serious: Yes (Hospitalization, Other)
  Sender: FDA-Public Use
  Company Number: GB-BRISTOL-MYERS SQUIBB COMPANY-15364409

PATIENT
  Age: 74 Year
  Sex: Male
  Weight: 80.1 kg

DRUGS (5)
  1. DASATINIB [Suspect]
     Active Substance: DASATINIB
     Indication: CHRONIC MYELOID LEUKAEMIA
     Dosage: 100 MG, QD
     Route: 048
     Dates: start: 20090804
  2. OXAZEPAM. [Concomitant]
     Active Substance: OXAZEPAM
     Indication: SEDATION
     Dosage: 10 MG, QHS
     Route: 048
  3. LANSOPRAZOLE. [Concomitant]
     Active Substance: LANSOPRAZOLE
     Indication: ANTACID THERAPY
     Dosage: 30 MG, QD
     Route: 048
     Dates: start: 200912
  4. COLOFAC [Concomitant]
     Active Substance: MEBEVERINE HYDROCHLORIDE
     Indication: ABDOMINAL PAIN
     Dosage: 135 MG, BID
     Route: 048
     Dates: start: 200903
  5. PHENYTOIN. [Concomitant]
     Active Substance: PHENYTOIN
     Indication: EPILEPSY
     Dosage: STARTED 40+YEARS
     Route: 048

REACTIONS (1)
  - Hyperglycaemia [Recovered/Resolved with Sequelae]

NARRATIVE: CASE EVENT DATE: 20101030
